FAERS Safety Report 24895067 (Version 3)
Quarter: 2025Q3

REPORT INFORMATION
  Report Type: Report from Study
  Country: US (occurrence: US)
  Receive Date: 20250128
  Receipt Date: 20250708
  Transmission Date: 20251021
  Serious: No
  Sender: SUNOVION
  Company Number: US-SUMITOMO PHARMA SWITZERLAND GMBH-2025SPA000561

PATIENT

DRUGS (4)
  1. ORGOVYX [Suspect]
     Active Substance: RELUGOLIX
     Indication: Prostate cancer
     Route: 048
     Dates: start: 20241108, end: 20241108
  2. ORGOVYX [Suspect]
     Active Substance: RELUGOLIX
     Dosage: 120 MG, QD
     Route: 048
     Dates: start: 20241109
  3. ORGOVYX [Suspect]
     Active Substance: RELUGOLIX
     Route: 065
     Dates: start: 20241108, end: 20241108
  4. ORGOVYX [Suspect]
     Active Substance: RELUGOLIX
     Dosage: 120 MG, QD
     Route: 065
     Dates: start: 20241108

REACTIONS (5)
  - White blood cell count decreased [Unknown]
  - Total cholesterol/HDL ratio abnormal [Unknown]
  - Blood triglycerides abnormal [Unknown]
  - Hot flush [Unknown]
  - Adverse event [Unknown]
